FAERS Safety Report 16074193 (Version 1)
Quarter: 2019Q1

REPORT INFORMATION
  Report Type: Spontaneous
  Country: LB (occurrence: LB)
  Receive Date: 20190314
  Receipt Date: 20190314
  Transmission Date: 20190418
  Serious: Yes (Hospitalization, Other)
  Sender: FDA-Public Use
  Company Number: LB-BRISTOL-MYERS SQUIBB COMPANY-BMS-2018-115634

PATIENT
  Age: 37 Year
  Sex: Female

DRUGS (1)
  1. OPDIVO [Suspect]
     Active Substance: NIVOLUMAB
     Indication: TONGUE NEOPLASM MALIGNANT STAGE UNSPECIFIED
     Dosage: 240 MG, Q2WK
     Route: 042

REACTIONS (4)
  - Internal haemorrhage [Unknown]
  - Herpes zoster [Recovering/Resolving]
  - Malignant neoplasm progression [Unknown]
  - Therapy non-responder [Unknown]
